FAERS Safety Report 15998322 (Version 1)
Quarter: 2019Q1

REPORT INFORMATION
  Report Type: Report from Study
  Country: GB (occurrence: GB)
  Receive Date: 20190223
  Receipt Date: 20190223
  Transmission Date: 20190418
  Serious: Yes (Death, Hospitalization, Other)
  Sender: FDA-Public Use
  Company Number: GB-AMGEN-GBRCT2012003928

PATIENT
  Age: 74 Year
  Sex: Female
  Weight: 54 kg

DRUGS (1)
  1. ETANERCEPT [Suspect]
     Active Substance: ETANERCEPT
     Indication: RHEUMATOID ARTHRITIS
     Dosage: 25 MG, 2 TIMES/WK
     Route: 065
     Dates: start: 20080715

REACTIONS (3)
  - Metastatic carcinoid tumour [Fatal]
  - Rheumatoid arthritis [Fatal]
  - Septic shock [Fatal]

NARRATIVE: CASE EVENT DATE: 20100209
